FAERS Safety Report 5812559-8 (Version None)
Quarter: 2008Q3

REPORT INFORMATION
  Report Type: 
  Country: None (occurrence: None)
  Receive Date: 20080714
  Receipt Date: 20080714
  Transmission Date: 20090109
  Serious: Yes (Other)
  Sender: FDA-Public Use
  Company Number: None

PATIENT
  Age: 58 Year
  Sex: Female
  Weight: 56.6996 kg

DRUGS (3)
  1. CEFUROXIME [Suspect]
     Indication: ESCHERICHIA URINARY TRACT INFECTION
     Dates: start: 20080618, end: 20080627
  2. CEPHALEXIN [Suspect]
     Indication: ANTIBIOTIC PROPHYLAXIS
     Dates: start: 20080628, end: 20080705
  3. CEPHALEXIN [Suspect]
     Indication: ESCHERICHIA URINARY TRACT INFECTION
     Dates: start: 20080628, end: 20080705

REACTIONS (11)
  - ARTHRALGIA [None]
  - BACK PAIN [None]
  - BONE PAIN [None]
  - JOINT RANGE OF MOTION DECREASED [None]
  - MUSCLE SPASMS [None]
  - MUSCULOSKELETAL PAIN [None]
  - MUSCULOSKELETAL STIFFNESS [None]
  - MYALGIA [None]
  - SERUM SICKNESS [None]
  - SLEEP DISORDER DUE TO GENERAL MEDICAL CONDITION, INSOMNIA TYPE [None]
  - TENDON PAIN [None]
